FAERS Safety Report 5219296-1 (Version None)
Quarter: 2007Q1

REPORT INFORMATION
  Report Type: 
  Country: None (occurrence: None)
  Receive Date: 20070125
  Receipt Date: 20070116
  Transmission Date: 20070707
  Serious: Yes (Hospitalization)
  Sender: FDA-Public Use
  Company Number: US-AVENTIS-200617504US

PATIENT
  Sex: Male
  Weight: 60.45 kg

DRUGS (9)
  1. LANTUS [Suspect]
     Dates: start: 20061001
  2. OPTICLIK (INSULIN INJECTION PEN) [Suspect]
  3. WARFARIN SODIUM [Suspect]
     Dosage: DOSE: UNK
  4. COREG [Concomitant]
     Dosage: DOSE: UNKNOWN
  5. COZAAR [Concomitant]
     Dosage: DOSE: UNKNOWN
  6. WARFARIN SODIUM [Concomitant]
     Dosage: DOSE: UNKNOWN
  7. FOLIC ACID [Concomitant]
     Dosage: DOSE: UNKNOWN
  8. SIMVISTATIN [Concomitant]
     Dosage: DOSE: UNKNOWN
  9. CELEXA                             /00582602/ [Concomitant]
     Dosage: DOSE: UNKNOWN

REACTIONS (3)
  - BLOOD GLUCOSE INCREASED [None]
  - DRUG INEFFECTIVE [None]
  - MEDICATION ERROR [None]
